FAERS Safety Report 9239694 (Version 3)
Quarter: 2013Q2

REPORT INFORMATION
  Report Type: Spontaneous
  Country: US (occurrence: US)
  Receive Date: 20130418
  Receipt Date: 20130617
  Transmission Date: 20140414
  Serious: No
  Sender: FDA-Public Use
  Company Number: US-PFIZER INC-2013119156

PATIENT
  Age: 55 Year
  Sex: Female
  Weight: 54.4 kg

DRUGS (10)
  1. XELJANZ [Suspect]
     Indication: RHEUMATOID ARTHRITIS
     Dosage: 5 MG, 2X/DAY
     Route: 048
     Dates: start: 201305
  2. OMEPRAZOLE [Concomitant]
     Dosage: 10 MG
  3. FERROUS SULFATE [Concomitant]
     Dosage: UNK
  4. NAPROXEN [Concomitant]
     Dosage: 250 MG
  5. GABAPENTIN [Concomitant]
     Dosage: 100 MG
  6. TYLENOL ARTHRITIS [Concomitant]
     Dosage: 650 MG
  7. TRAMADOL HYDROCHLORIDE [Concomitant]
     Dosage: 50 MG
  8. DEPAKOTE [Concomitant]
     Indication: CONVULSION
     Dosage: 125 MG
     Dates: start: 2012
  9. RECLAST [Concomitant]
     Dosage: 5/100 ML
  10. PRILOSEC [Concomitant]

REACTIONS (2)
  - Skin disorder [Recovered/Resolved]
  - Acne [Unknown]
